FAERS Safety Report 9146628 (Version 1)
Quarter: 2013Q1

REPORT INFORMATION
  Report Type: Spontaneous
  Country: FI (occurrence: FI)
  Receive Date: 20130307
  Receipt Date: 20130307
  Transmission Date: 20140127
  Serious: Yes (Life-Threatening, Hospitalization)
  Sender: FDA-Public Use
  Company Number: FI-009507513-2011SP048446

PATIENT
  Age: 43 Year
  Sex: Female

DRUGS (6)
  1. ESMERON [Suspect]
     Indication: MUSCLE RELAXANT THERAPY
     Dosage: STRENGTH: 10 MG/ML, UNK
     Route: 042
     Dates: start: 20111013, end: 20111013
  2. PANADOL [Concomitant]
     Indication: ANALGESIC THERAPY
     Dosage: STRENGTH: 1GM
     Route: 048
     Dates: start: 20111013, end: 20111013
  3. ORADEXON [Concomitant]
     Indication: PROPHYLAXIS OF NAUSEA AND VOMITING
     Dosage: STRENGTH: 5MG/ML SOLUTION
     Route: 042
     Dates: start: 20111013, end: 20111013
  4. LIDOCAINE HYDROCHLORIDE [Concomitant]
     Indication: PROPHYLAXIS
     Dosage: STRENGTH: 10MG/ML SOLUTION
     Route: 042
     Dates: start: 20111013, end: 20111013
  5. DIPRIVAN [Concomitant]
     Indication: HYPNOTHERAPY
     Dosage: STRENGTH: 20MG/ML SOLUTION
     Route: 042
     Dates: start: 20111013, end: 20111013
  6. ULTIVA [Concomitant]
     Indication: ANALGESIC THERAPY
     Dosage: STRENGTH: 0.05MG/ML SOLUTION
     Route: 042
     Dates: start: 20111013, end: 20111013

REACTIONS (5)
  - Anaphylactic shock [Recovered/Resolved]
  - Tachycardia [Recovered/Resolved]
  - Hypotension [Recovered/Resolved]
  - Bradycardia [Recovered/Resolved]
  - Oxygen saturation decreased [Recovered/Resolved]
